FAERS Safety Report 8592336-8 (Version None)
Quarter: 2012Q3

REPORT INFORMATION
  Report Type: 
  Country: None (occurrence: None)
  Receive Date: 20120814
  Receipt Date: 20120806
  Transmission Date: 20120928
  Serious: Yes (Life-Threatening)
  Sender: FDA-Public Use
  Company Number: BE-JNJFOC-JABEL37557

PATIENT
  Sex: Female
  Weight: 70 kg

DRUGS (45)
  1. MAGNESIUM SULFATE [Concomitant]
     Route: 041
     Dates: start: 19980116, end: 19980116
  2. ZOLPIDEM TATRATE [Concomitant]
     Route: 065
     Dates: start: 19980117, end: 19980119
  3. PARENTERAL [Concomitant]
     Route: 048
     Dates: start: 19980119, end: 19980119
  4. BACTRIM [Concomitant]
     Indication: PROPHYLAXIS
     Route: 065
     Dates: end: 19980120
  5. CORVATON [Concomitant]
     Indication: HYPERTENSION
     Route: 065
     Dates: end: 19980203
  6. LASIX [Concomitant]
     Indication: HYPERTENSION
     Route: 041
     Dates: start: 19980119, end: 19980121
  7. POTASSIUM CHLORIDE [Concomitant]
     Route: 041
     Dates: start: 19980124, end: 19980131
  8. OLIGON [Concomitant]
     Route: 041
     Dates: start: 19980116
  9. ENALAPRIL MALEATE [Concomitant]
     Indication: HYPERTENSION
     Route: 065
  10. ITRACONAZOLE [Suspect]
     Indication: PROPHYLAXIS
     Route: 041
     Dates: start: 19980118, end: 19980122
  11. ACTRAPID [Concomitant]
     Indication: HYPERGLYCAEMIA
     Route: 041
     Dates: end: 19980202
  12. MAGNESIUM SULFATE [Concomitant]
     Route: 041
     Dates: start: 19980125, end: 19980125
  13. GLUCOSE [Concomitant]
     Route: 065
  14. ZANTAC [Concomitant]
     Indication: PROPHYLAXIS
     Route: 041
     Dates: end: 19980120
  15. PRIMPERAN TAB [Concomitant]
     Indication: PROPHYLAXIS
     Route: 041
     Dates: start: 19980116, end: 19980119
  16. PIPCIL [Concomitant]
     Indication: PNEUMONIA
     Route: 041
     Dates: start: 19980122, end: 19980128
  17. ZOLPIDEM TATRATE [Concomitant]
     Indication: SLEEP DISORDER
     Route: 048
     Dates: start: 19980126, end: 19980126
  18. ITRACONAZOLE [Suspect]
     Route: 041
     Dates: start: 19980116, end: 19980117
  19. VINTENE [Concomitant]
     Route: 041
     Dates: end: 19980131
  20. NEUPOGEN [Concomitant]
     Indication: NEUTROPENIA
     Route: 058
     Dates: end: 19980118
  21. OTHER NUTRIENTS [Concomitant]
     Route: 041
     Dates: end: 19980120
  22. AZACTAM [Concomitant]
     Indication: PNEUMONIA
     Route: 041
     Dates: start: 19980119, end: 19980119
  23. PARENTERAL [Concomitant]
     Route: 048
     Dates: start: 19980120, end: 19980123
  24. POTASSIUM CHLORIDE [Concomitant]
     Route: 041
     Dates: start: 19980120, end: 19980122
  25. NEORAL [Concomitant]
     Indication: APLASTIC ANAEMIA
     Route: 065
     Dates: start: 19980121
  26. FOLIC ACID [Concomitant]
     Route: 041
     Dates: start: 19980123
  27. IMODIUM [Concomitant]
     Indication: DIARRHOEA
     Route: 065
     Dates: start: 19980125, end: 19980125
  28. CERNEVIT-12 [Concomitant]
     Route: 041
  29. NEUROBION [Concomitant]
     Route: 041
  30. PIPCIL [Concomitant]
     Route: 041
     Dates: start: 19980121, end: 19980122
  31. AMLODIPINE BESYLATE [Concomitant]
     Indication: HYPERTENSION
     Route: 065
     Dates: end: 19980120
  32. DUOVENT [Concomitant]
     Indication: BRONCHOSPASM
     Dosage: 4-6 PUFFS
     Route: 065
  33. PARENTERAL [Concomitant]
     Indication: DIARRHOEA
     Route: 048
     Dates: start: 19980125
  34. LEUCOMAX [Concomitant]
     Indication: APLASTIC ANAEMIA
     Route: 058
     Dates: start: 19980120, end: 19980125
  35. TAGAMET [Concomitant]
     Indication: PROPHYLAXIS
     Route: 041
     Dates: start: 19980120
  36. IMODIUM [Concomitant]
     Route: 065
     Dates: start: 19980119, end: 19980121
  37. MEDIALIPIDE [Concomitant]
     Route: 041
     Dates: end: 19980131
  38. SOLU-CORTEF [Concomitant]
     Indication: ADRENAL INSUFFICIENCY
     Route: 041
     Dates: end: 19980129
  39. ERYTHROMYCIN [Concomitant]
     Indication: HYPOTHYROIDISM
     Route: 065
  40. TENORMIN [Concomitant]
     Indication: HYPERTENSION
     Route: 065
     Dates: end: 19980204
  41. DIHYDRALAZINE SULFATE [Concomitant]
     Indication: HYPERTENSION
     Route: 041
     Dates: start: 19980117, end: 19980117
  42. AZACTAM [Concomitant]
     Route: 041
     Dates: start: 19980120, end: 19980120
  43. TENORMIN [Concomitant]
     Indication: SUPRAVENTRICULAR TACHYCARDIA
     Route: 065
     Dates: end: 19980204
  44. MAGNESIUM SULFATE [Concomitant]
     Route: 041
     Dates: start: 19980129, end: 19980129
  45. TARGOCID [Concomitant]
     Indication: PNEUMONIA
     Route: 041
     Dates: end: 19980127

REACTIONS (3)
  - VENTRICULAR FIBRILLATION [None]
  - TORSADE DE POINTES [None]
  - HYPOMAGNESAEMIA [None]
